FAERS Safety Report 8613949 (Version 3)
Quarter: 2012Q4

REPORT INFORMATION
  Report Type: 
  Country: US (occurrence: US)
  Receive Date: 20120614
  Receipt Date: 20120928
  Transmission Date: 20130627
  Serious: Yes (Hospitalization)
  Sender: FDA-Public Use
  Company Number: US-BAYER-2012-056754

PATIENT
  Age: 29 Year
  Sex: Female
  Weight: 81.63 kg

DRUGS (11)
  1. YASMIN [Suspect]
     Indication: ACNE
     Dosage: UNK
     Dates: start: 200908, end: 201106
  2. YASMIN [Suspect]
     Indication: CONTRACEPTION
  3. NAPROSYN [Concomitant]
     Indication: INFLAMMATION
     Dosage: 500 mg, 1 tablet every 12 hours
     Route: 048
     Dates: start: 20110512, end: 20110601
  4. NAPROSYN [Concomitant]
     Indication: PAIN
  5. VICODIN [Concomitant]
     Indication: PAIN
     Dosage: 5-500 mg 1 to 2 at bedtime PRN (interpreted as as needed)
     Route: 048
     Dates: start: 20110512
  6. FLEXERIL [Concomitant]
     Indication: MUSCLE SPASMS
     Dosage: 10 mg, TID PRN
     Route: 048
  7. ASCORBIC ACID [Concomitant]
     Dosage: Occasional as needed
  8. NSAID^S [Concomitant]
     Dosage: Occasional as needed
  9. SUMATRIPTAN [Concomitant]
     Indication: MIGRAINE
     Dosage: 3 TIMES PER YEAR
     Dates: start: 2010
  10. CLINDAMYCIN [Concomitant]
  11. IBUPROFEN [Concomitant]
     Dosage: UNK

REACTIONS (9)
  - Deep vein thrombosis [None]
  - Pulmonary embolism [None]
  - Injury [None]
  - Pain [None]
  - Pain [None]
  - Panic attack [None]
  - Venous injury [None]
  - Mental disorder [None]
  - Varicose vein [None]
